FAERS Safety Report 6376845-8 (Version None)
Quarter: 2009Q3

REPORT INFORMATION
  Report Type: 
  Country: None (occurrence: None)
  Receive Date: 20090925
  Receipt Date: 20090914
  Transmission Date: 20100115
  Serious: No
  Sender: FDA-Public Use
  Company Number: US-B.I. PHARMACEUTICALS,INC./RIDGEFIELD-2009-BP-10749BP

PATIENT
  Age: 93 Year
  Sex: Female

DRUGS (4)
  1. SPIRIVA [Suspect]
  2. VENTOLIN [Suspect]
  3. ADVAIR DISKUS 100/50 [Concomitant]
     Route: 055
  4. COMBIVENT [Concomitant]
     Route: 055

REACTIONS (1)
  - CONDITION AGGRAVATED [None]
